FAERS Safety Report 8979282 (Version 2)
Quarter: 2013Q1

REPORT INFORMATION
  Report Type: Spontaneous
  Country: US (occurrence: US)
  Receive Date: 20121221
  Receipt Date: 20130301
  Transmission Date: 20140127
  Serious: No
  Sender: FDA-Public Use
  Company Number: US-PFIZER INC-2012322593

PATIENT
  Sex: Female
  Weight: 68.03 kg

DRUGS (2)
  1. VENLAFAXINE HYDROCHLORIDE [Suspect]
     Indication: DEPRESSION
     Dosage: 150 MG, DAILY
     Route: 048
     Dates: end: 2012
  2. VENLAFAXINE HYDROCHLORIDE [Suspect]
     Indication: ANXIETY

REACTIONS (3)
  - Drug ineffective [Unknown]
  - Irritability [Unknown]
  - Wrong technique in drug usage process [Unknown]
